FAERS Safety Report 4868079-0 (Version None)
Quarter: 2005Q4

REPORT INFORMATION
  Report Type: 
  Country: None (occurrence: None)
  Receive Date: 20051229
  Receipt Date: 20051222
  Transmission Date: 20060501
  Serious: Yes (Hospitalization)
  Sender: FDA-Public Use
  Company Number: AT-JNJFOC-20050303359

PATIENT
  Age: 61 Year
  Sex: Female
  Weight: 79 kg

DRUGS (14)
  1. REMICADE [Suspect]
     Indication: CROHN'S DISEASE
     Route: 042
  2. AZATHIOPRINE [Concomitant]
     Indication: CROHN'S DISEASE
     Route: 048
  3. APREDNISOLON [Concomitant]
     Indication: CROHN'S DISEASE
     Route: 048
  4. MESALAZIN [Concomitant]
     Indication: CROHN'S DISEASE
     Route: 048
  5. CLARITHROMYCIN [Concomitant]
     Indication: PNEUMONIA
     Route: 048
  6. ESOMEPRAZOL [Concomitant]
     Indication: CROHN'S DISEASE
     Route: 048
  7. LEVOTHYROXIN [Concomitant]
     Indication: HYPOTHYROIDISM
     Route: 048
  8. VENLAFAXIN [Concomitant]
     Indication: DEPRESSION
     Route: 048
  9. ZOLPIDEM TARTRATE [Concomitant]
     Indication: DEPRESSION
     Route: 048
  10. SIMETHICON [Concomitant]
  11. SALMETEROL [Concomitant]
  12. IPRATROPIUM BROMIDE MONOHYDRATE [Concomitant]
  13. ACETYLCYSTEINE [Concomitant]
     Route: 048
  14. MOXIFLOXACIN HCL [Concomitant]
     Indication: PNEUMONIA

REACTIONS (2)
  - PNEUMONIA [None]
  - PULMONARY TUBERCULOSIS [None]
